FAERS Safety Report 23890762 (Version 1)
Quarter: 2024Q2

REPORT INFORMATION
  Report Type: Spontaneous
  Country: US (occurrence: None)
  Receive Date: 20240523
  Receipt Date: 20240523
  Transmission Date: 20240715
  Serious: Yes (Hospitalization, Other)
  Sender: FDA-Public Use
  Company Number: None

PATIENT
  Sex: Female
  Weight: 60.75 kg

DRUGS (4)
  1. HERBALS\MITRAGYNINE [Suspect]
     Active Substance: HERBALS\MITRAGYNINE
     Indication: Substance use
  2. MED USED TO TREAT SEIZURES [Concomitant]
  3. MED USED TO TREAT DEPRESSION [Concomitant]
  4. MED USED TO TREAT BIPOLAR [Concomitant]

REACTIONS (5)
  - Drug abuse [None]
  - Euphoric mood [None]
  - Alcohol abuse [None]
  - Drug abuse [None]
  - Drug dependence [None]
